FAERS Safety Report 17149655 (Version 1)
Quarter: 2019Q4

REPORT INFORMATION
  Report Type: Report from Study
  Country: US (occurrence: US)
  Receive Date: 20191213
  Receipt Date: 20191213
  Transmission Date: 20200122
  Serious: No
  Sender: FDA-Public Use
  Company Number: NVSC2019US002389

PATIENT

DRUGS (1)
  1. ILARIS [Suspect]
     Active Substance: CANAKINUMAB
     Indication: AUTOINFLAMMATORY DISEASE
     Dosage: 80 MG, Q4W (BATCH NUMBER WAS UNKNOWN)
     Route: 065
     Dates: start: 20180616

REACTIONS (2)
  - Abdominal pain [Unknown]
  - Diarrhoea [Unknown]
